FAERS Safety Report 16950874 (Version 1)
Quarter: 2019Q4

REPORT INFORMATION
  Report Type: Spontaneous
  Country: CA (occurrence: CA)
  Receive Date: 20191023
  Receipt Date: 20191023
  Transmission Date: 20200122
  Serious: Yes (Hospitalization)
  Sender: FDA-Public Use
  Company Number: CA-PFIZER INC-2019454562

PATIENT
  Age: 75 Year
  Sex: Female
  Weight: 63.49 kg

DRUGS (8)
  1. DILANTIN [Suspect]
     Active Substance: PHENYTOIN
     Indication: PROPHYLAXIS
  2. ASA [Concomitant]
     Active Substance: ASPIRIN
     Dosage: UNK
  3. INSULIN NPH [INSULIN ISOPHANE BOVINE] [Concomitant]
     Dosage: UNK
  4. MULTIVITAMINES AND MINERALS [Concomitant]
     Active Substance: MINERALS\VITAMINS
     Dosage: UNK
  5. DILANTIN [Suspect]
     Active Substance: PHENYTOIN
     Indication: TRANSIENT ISCHAEMIC ATTACK
     Dosage: 100 MG, 2X/DAY
     Route: 048
  6. LAMISIL [Concomitant]
     Active Substance: TERBINAFINE HYDROCHLORIDE
     Dosage: UNK
  7. VITAMIN D [COLECALCIFEROL] [Concomitant]
     Active Substance: CHOLECALCIFEROL
     Dosage: UNK
  8. HUMULIN R [Concomitant]
     Active Substance: INSULIN HUMAN
     Dosage: UNK

REACTIONS (4)
  - Decubitus ulcer [Recovered/Resolved]
  - Dyspnoea [Recovered/Resolved]
  - Pleural effusion [Recovered/Resolved]
  - Cough [Recovered/Resolved]
